FAERS Safety Report 9471165 (Version 1)
Quarter: 2013Q3

REPORT INFORMATION
  Report Type: Report from Study
  Country: GB (occurrence: GB)
  Receive Date: 20130822
  Receipt Date: 20130822
  Transmission Date: 20140515
  Serious: Yes (Life-Threatening, Hospitalization)
  Sender: FDA-Public Use
  Company Number: GB-PFIZER INC-2013240222

PATIENT
  Age: 48 Year
  Sex: Female

DRUGS (7)
  1. DOXORUBICIN [Suspect]
     Indication: B-CELL LYMPHOMA
     Dosage: 85 MG, EVERY 3 WEEKS
     Route: 042
     Dates: start: 20110421
  2. CYCLOPHOSPHAMIDE [Suspect]
     Indication: B-CELL LYMPHOMA
     Dosage: 1275 MG, EVERY 3 WEEKS
     Route: 042
     Dates: start: 20110421
  3. VINCRISTINE [Suspect]
     Indication: B-CELL LYMPHOMA
     Dosage: 2 MG, EVERY 3 WEEKS
     Route: 042
     Dates: start: 20110421
  4. PREDNISOLON [Suspect]
     Indication: B-CELL LYMPHOMA
     Dosage: EVERY 3 WEEKS
     Route: 048
     Dates: start: 20110421
  5. OBINUTUZUMAB [Suspect]
     Indication: B-CELL LYMPHOMA
     Dosage: 1000 MG, ONCE IN 12 WEEKS
     Route: 042
     Dates: start: 20110421
  6. OBINUTUZUMAB [Suspect]
     Dosage: 1000 MG, ONCE IN 12 WEEKS
     Route: 042
     Dates: start: 20110519
  7. LANSOPRAZOLE [Concomitant]
     Dosage: UNK

REACTIONS (2)
  - Myocardial infarction [Recovered/Resolved]
  - Angina pectoris [Recovered/Resolved]
